FAERS Safety Report 11714907 (Version 1)
Quarter: 2015Q4

REPORT INFORMATION
  Report Type: Spontaneous
  Country: US (occurrence: US)
  Receive Date: 20151109
  Receipt Date: 20151109
  Transmission Date: 20160304
  Serious: Yes (Hospitalization, Other)
  Sender: FDA-Public Use
  Company Number: US-GLAXOSMITHKLINE-US2015158254

PATIENT
  Sex: Male

DRUGS (2)
  1. COREG [Suspect]
     Active Substance: CARVEDILOL
  2. COREG [Suspect]
     Active Substance: CARVEDILOL
     Indication: ARRHYTHMIA
     Dosage: 6.25
     Route: 048

REACTIONS (2)
  - Implantable defibrillator insertion [Recovering/Resolving]
  - Cardiac pacemaker battery replacement [Unknown]

NARRATIVE: CASE EVENT DATE: 2009
